FAERS Safety Report 10425135 (Version 1)
Quarter: 2014Q3

REPORT INFORMATION
  Report Type: Spontaneous
  Country: CN (occurrence: CN)
  Receive Date: 20140902
  Receipt Date: 20140902
  Transmission Date: 20150326
  Serious: Yes (Hospitalization)
  Sender: FDA-Public Use
  Company Number: CN-GLAXOSMITHKLINE-B1028908A

PATIENT
  Age: 74 Year
  Sex: Male
  Weight: 70 kg

DRUGS (1)
  1. SERETIDE [Suspect]
     Active Substance: FLUTICASONE FUROATE\SALMETEROL XINAFOATE
     Indication: CHRONIC OBSTRUCTIVE PULMONARY DISEASE
     Dosage: 1PUFF TWICE PER DAY
     Route: 055
     Dates: start: 2011

REACTIONS (6)
  - Abdominal distension [Recovering/Resolving]
  - Oropharyngeal discomfort [Unknown]
  - Cardiac discomfort [Unknown]
  - Dyspnoea [Unknown]
  - Cor pulmonale [Recovering/Resolving]
  - Transaminases increased [Recovering/Resolving]
